FAERS Safety Report 19617196 (Version 2)
Quarter: 2021Q3

REPORT INFORMATION
  Report Type: Spontaneous
  Country: US (occurrence: US)
  Receive Date: 20210728
  Receipt Date: 20210920
  Transmission Date: 20211014
  Serious: Yes (Other)
  Sender: FDA-Public Use
  Company Number: US-JNJFOC-20210743179

PATIENT
  Sex: Male
  Weight: 70.37 kg

DRUGS (11)
  1. SYNACORT [Concomitant]
     Active Substance: HYDROCORTISONE
  2. INVEGA SUSTENNA [Suspect]
     Active Substance: PALIPERIDONE PALMITATE
     Indication: SCHIZOPHRENIA
     Route: 030
     Dates: start: 2003
  3. INVEGA SUSTENNA [Suspect]
     Active Substance: PALIPERIDONE PALMITATE
     Indication: MESOTHELIOMA
  4. ST JOHNS WORT [Concomitant]
     Active Substance: ST. JOHN^S WORT
  5. LITHIUM. [Suspect]
     Active Substance: LITHIUM
     Indication: PRODUCT USED FOR UNKNOWN INDICATION
     Route: 065
  6. INVEGA SUSTENNA [Suspect]
     Active Substance: PALIPERIDONE PALMITATE
     Indication: AUTISM SPECTRUM DISORDER
  7. DEPAKOTE [Concomitant]
     Active Substance: DIVALPROEX SODIUM
  8. GLUCOSAMINE [Concomitant]
     Active Substance: GLUCOSAMINE
  9. INVEGA SUSTENNA [Suspect]
     Active Substance: PALIPERIDONE PALMITATE
     Indication: BRAIN NEOPLASM MALIGNANT
  10. RISPERDAL [Suspect]
     Active Substance: RISPERIDONE
     Indication: PRODUCT USED FOR UNKNOWN INDICATION
     Route: 048
     Dates: start: 2020, end: 2020
  11. CHONDROITIN [Concomitant]
     Active Substance: CHONDROITIN

REACTIONS (5)
  - Intervertebral disc protrusion [Unknown]
  - Dementia [Recovering/Resolving]
  - Suicidal ideation [Recovered/Resolved]
  - Hip fracture [Unknown]
  - Hypersomnia [Unknown]
